FAERS Safety Report 19733834 (Version 1)
Quarter: 2021Q3

REPORT INFORMATION
  Report Type: Spontaneous
  Country: DE (occurrence: DE)
  Receive Date: 20210823
  Receipt Date: 20210823
  Transmission Date: 20211014
  Serious: Yes (Death, Hospitalization)
  Sender: FDA-Public Use
  Company Number: DE-AUROBINDO-AUR-APL-2019-002254

PATIENT
  Age: 93 Year
  Sex: Female
  Weight: 58 kg

DRUGS (16)
  1. DOMPERIDONE RATIOPHARM [Suspect]
     Active Substance: DOMPERIDONE
     Indication: NAUSEA
  2. TORASEMIDE [Concomitant]
     Active Substance: TORSEMIDE
     Indication: HYPERTENSION
  3. METOHEXAL [Concomitant]
     Active Substance: METOPROLOL
     Indication: HYPERTENSION
     Dosage: 1/2 TABLET
     Route: 065
  4. DIAZEPAM. [Suspect]
     Active Substance: DIAZEPAM
     Indication: PRODUCT USED FOR UNKNOWN INDICATION
     Dosage: UNK
     Route: 065
  5. DOMPERIDONE RATIOPHARM [Suspect]
     Active Substance: DOMPERIDONE
     Indication: GASTROINTESTINAL DISORDER
     Dosage: 3 DOSAGE FORM, ONCE A DAY
     Route: 048
     Dates: start: 2015, end: 20181218
  6. METOCLOPRAMIDE. [Concomitant]
     Active Substance: METOCLOPRAMIDE
     Indication: GASTROINTESTINAL DISORDER
     Dosage: 1 DOSAGE FORM, ONCE A DAY
     Route: 050
     Dates: start: 201505
  7. OMEP [Concomitant]
     Active Substance: OMEPRAZOLE
     Indication: PRODUCT USED FOR UNKNOWN INDICATION
     Dosage: 20 MILLIGRAM
     Route: 065
  8. MOXIFLOXACIN HEXAL [Suspect]
     Active Substance: MOXIFLOXACIN HYDROCHLORIDE
     Indication: URINARY TRACT INFECTION
     Dosage: 400 MILLIGRAM, ONCE A DAY
     Route: 048
     Dates: start: 20181215, end: 20181217
  9. ASPIRIN PROTECT [Concomitant]
     Active Substance: ASPIRIN
     Indication: CEREBROVASCULAR ACCIDENT
     Dosage: 1 DOSAGE FORM, ONCE A DAY
     Route: 065
     Dates: start: 199707
  10. HEPARIN [Concomitant]
     Active Substance: HEPARIN SODIUM
     Indication: PRODUCT USED FOR UNKNOWN INDICATION
     Dosage: 1 DOSAGE FORM, ONCE A DAY (50000IU AND 750 ML IN ALTERNATION; 0?1?0 (AFTERNOON))
     Route: 065
     Dates: start: 201605
  11. METOCLOPRAMIDE. [Concomitant]
     Active Substance: METOCLOPRAMIDE
     Indication: ENTERAL NUTRITION
     Dosage: UNK, ONCE A DAY (1?1; LONG?TERM MEDICATION )
     Route: 065
     Dates: start: 2016
  12. ASPIRIN. [Concomitant]
     Active Substance: ASPIRIN
     Indication: CEREBROVASCULAR ACCIDENT PROPHYLAXIS
  13. MOXIFLOXACIN FILM?COATED TABLET [Suspect]
     Active Substance: MOXIFLOXACIN
     Indication: URINARY TRACT INFECTION
     Dosage: 2 TABLETS (MANUFACTURER UNKNOWN) RECEIVED FROM PHYSICIAN AT A HOME VISIT , AFTERWARDS MOXOFLOXACIN H
     Route: 065
     Dates: start: 20181215, end: 201812
  14. DOMPERIDONE RATIOPHARM [Suspect]
     Active Substance: DOMPERIDONE
     Indication: VOMITING
  15. TORASEMIDE [Concomitant]
     Active Substance: TORSEMIDE
     Indication: ESSENTIAL HYPERTENSION
     Dosage: 0.25 DOSAGE FORM, ONCE A DAY
     Route: 065
  16. ASPIRIN. [Concomitant]
     Active Substance: ASPIRIN
     Indication: ISCHAEMIC HEART DISEASE PROPHYLAXIS
     Dosage: 1 DOSAGE FORM, ONCE A DAY
     Route: 065
     Dates: start: 199707

REACTIONS (18)
  - Heart rate increased [Recovering/Resolving]
  - Psychomotor hyperactivity [Recovering/Resolving]
  - Mental disorder [Unknown]
  - Abnormal behaviour [Recovering/Resolving]
  - Drug interaction [Unknown]
  - Oral discharge [Unknown]
  - Pneumonia aspiration [Fatal]
  - Anxiety disorder [Recovering/Resolving]
  - Crying [Recovering/Resolving]
  - Pyrexia [Unknown]
  - Scatolia [Recovering/Resolving]
  - Hallucination [Recovering/Resolving]
  - Confusional state [Recovering/Resolving]
  - Panic attack [Recovering/Resolving]
  - Logorrhoea [Recovering/Resolving]
  - Agitation [Recovering/Resolving]
  - Cystitis [Recovering/Resolving]
  - Panic reaction [Unknown]

NARRATIVE: CASE EVENT DATE: 201812
